FAERS Safety Report 15879787 (Version 1)
Quarter: 2019Q1

REPORT INFORMATION
  Report Type: Spontaneous
  Country: US (occurrence: US)
  Receive Date: 20190126
  Receipt Date: 20190126
  Transmission Date: 20190417
  Serious: Yes (Disabling)
  Sender: FDA-Public Use
  Company Number: None

PATIENT
  Age: 40 Year
  Sex: Female
  Weight: 108.86 kg

DRUGS (1)
  1. PARAGARD T 380A [Suspect]
     Active Substance: COPPER

REACTIONS (12)
  - Back pain [None]
  - Systemic lupus erythematosus [None]
  - Blood copper increased [None]
  - Systemic toxicity [None]
  - Complication associated with device [None]
  - Alopecia [None]
  - Fibromyalgia [None]
  - Thyroid disorder [None]
  - Myalgia [None]
  - Arthralgia [None]
  - Rheumatoid arthritis [None]
  - Blood test abnormal [None]

NARRATIVE: CASE EVENT DATE: 20181203
